FAERS Safety Report 18526055 (Version 1)
Quarter: 2020Q4

REPORT INFORMATION
  Report Type: Spontaneous
  Country: US (occurrence: US)
  Receive Date: 20201120
  Receipt Date: 20201120
  Transmission Date: 20210114
  Serious: No
  Sender: FDA-Public Use
  Company Number: US-GILEAD-2020-0504236

PATIENT
  Sex: Male

DRUGS (5)
  1. FERROUS SULFATE. [Concomitant]
     Active Substance: FERROUS SULFATE
  2. IRON [Concomitant]
     Active Substance: IRON
  3. OMEPRAZOLE. [Concomitant]
     Active Substance: OMEPRAZOLE
  4. EPCLUSA [Suspect]
     Active Substance: SOFOSBUVIR\VELPATASVIR
     Indication: CHRONIC HEPATITIS C
     Dosage: 1 DOSAGE FORM, QD
     Route: 048
  5. AMLODIPINE BESILATE [Concomitant]
     Active Substance: AMLODIPINE BESYLATE

REACTIONS (1)
  - Abdominal pain upper [Recovered/Resolved]
